FAERS Safety Report 21668599 (Version 1)
Quarter: 2022Q4

REPORT INFORMATION
  Report Type: Spontaneous
  Country: US (occurrence: US)
  Receive Date: 20221201
  Receipt Date: 20221201
  Transmission Date: 20230113
  Serious: Yes (Other)
  Sender: FDA-Public Use
  Company Number: US-SA-SAC20221130000321

PATIENT
  Age: 24 Year
  Sex: Female

DRUGS (1)
  1. AUBAGIO [Suspect]
     Active Substance: TERIFLUNOMIDE
     Indication: Multiple sclerosis
     Dosage: 14 MG QD
     Route: 048
     Dates: start: 202105

REACTIONS (7)
  - Multiple sclerosis relapse [Unknown]
  - Gait disturbance [Unknown]
  - Coordination abnormal [Unknown]
  - Hypoaesthesia [Unknown]
  - Alopecia [Unknown]
  - Diarrhoea [Unknown]
  - Drug ineffective [Unknown]

NARRATIVE: CASE EVENT DATE: 20221101
